FAERS Safety Report 19095867 (Version 3)
Quarter: 2021Q2

REPORT INFORMATION
  Report Type: Spontaneous
  Country: US (occurrence: US)
  Receive Date: 20210406
  Receipt Date: 20210412
  Transmission Date: 20210717
  Serious: No
  Sender: FDA-Public Use
  Company Number: US-JNJFOC-20210358881

PATIENT
  Sex: Male

DRUGS (1)
  1. REMICADE [Suspect]
     Active Substance: INFLIXIMAB
     Indication: PRODUCT USED FOR UNKNOWN INDICATION
     Dosage: 6 X100MG
     Route: 042

REACTIONS (4)
  - Skin lesion [Unknown]
  - Condition aggravated [Unknown]
  - Adverse drug reaction [Unknown]
  - Product dose omission issue [Unknown]
